FAERS Safety Report 9182817 (Version 1)
Quarter: 2013Q1

REPORT INFORMATION
  Report Type: Spontaneous
  Country: ES (occurrence: ES)
  Receive Date: 20130322
  Receipt Date: 20130322
  Transmission Date: 20140127
  Serious: Yes (Hospitalization)
  Sender: FDA-Public Use
  Company Number: ES-ELI_LILLY_AND_COMPANY-ES201302006054

PATIENT
  Age: 65 Year
  Sex: Male

DRUGS (1)
  1. FORSTEO [Suspect]
     Dosage: UNK, UNKNOWN
     Route: 065
     Dates: start: 20111208

REACTIONS (1)
  - Infarction [Unknown]
